FAERS Safety Report 7360409-3 (Version None)
Quarter: 2011Q1

REPORT INFORMATION
  Report Type: 
  Country: None (occurrence: None)
  Receive Date: 20110318
  Receipt Date: 20101004
  Transmission Date: 20110831
  Serious: Yes (Hospitalization, Other)
  Sender: FDA-Public Use
  Company Number: US-BAYER-201012522NA

PATIENT
  Sex: Female
  Weight: 114 kg

DRUGS (7)
  1. FLUCONAZOLE [Concomitant]
  2. OCELLA [Suspect]
     Route: 048
     Dates: start: 20070101
  3. NEXIUM [Concomitant]
  4. YAZ [Suspect]
     Indication: PRODUCT USED FOR UNKNOWN INDICATION
     Dosage: UNK
     Dates: start: 20090501, end: 20090815
  5. YASMIN [Suspect]
     Indication: PRODUCT USED FOR UNKNOWN INDICATION
     Dosage: UNK
  6. OCELLA [Suspect]
     Indication: PRODUCT USED FOR UNKNOWN INDICATION
     Route: 048
     Dates: start: 20081201, end: 20090501
  7. NAPROXEN [Concomitant]
     Indication: PRODUCT USED FOR UNKNOWN INDICATION
     Route: 065

REACTIONS (5)
  - GALLBLADDER DISORDER [None]
  - CHOLELITHIASIS [None]
  - CHOLECYSTITIS ACUTE [None]
  - HEADACHE [None]
  - GALLBLADDER CHOLESTEROLOSIS [None]
